FAERS Safety Report 8096883 (Version 5)
Quarter: 2013Q2

REPORT INFORMATION
  Report Type: Spontaneous
  Country: US (occurrence: US)
  Receive Date: 20110818
  Receipt Date: 20130517
  Transmission Date: 20140414
  Serious: Yes (Hospitalization, Other)
  Sender: FDA-Public Use
  Company Number: US-ASTRAZENECA-2011SE47856

PATIENT
  Age: 27139 Day
  Sex: Female

DRUGS (17)
  1. SEROQUEL XR [Suspect]
     Indication: BIPOLAR DISORDER
     Route: 048
     Dates: start: 201103
  2. SEROQUEL XR [Suspect]
     Indication: ELECTROLYTE IMBALANCE
     Route: 048
     Dates: start: 201103
  3. SEROQUEL XR [Suspect]
     Indication: BIPOLAR DISORDER
     Route: 048
  4. SEROQUEL XR [Suspect]
     Indication: ELECTROLYTE IMBALANCE
     Route: 048
  5. INHALERS [Concomitant]
  6. LITHIUM CARBONATE [Concomitant]
     Dates: start: 1989, end: 2011
  7. DILTIAZEM [Concomitant]
     Route: 048
  8. FERRITIN [Concomitant]
  9. ONDANSETRON [Concomitant]
     Dosage: 1 MG (4 MG)
  10. ONDANSETRON [Concomitant]
     Dosage: 2 MG/ML
  11. LORAZEPAM [Concomitant]
     Route: 048
  12. POTASSIUM CHLORIDE [Concomitant]
     Route: 048
  13. LEVOTHYROXINE [Concomitant]
     Route: 048
  14. FLUTICASONE [Concomitant]
     Dosage: 0.05%, 16 GM
     Route: 045
  15. FLUTICASONE [Concomitant]
     Route: 055
  16. IRON [Concomitant]
  17. MECLIZINE HYDROCHLORIDE [Concomitant]
     Route: 048

REACTIONS (33)
  - Fall [Unknown]
  - Balance disorder [Unknown]
  - Loss of consciousness [Unknown]
  - Cataract [Unknown]
  - Chronic obstructive pulmonary disease [Unknown]
  - Contusion [Unknown]
  - Skin discolouration [Unknown]
  - Neuropathy peripheral [Unknown]
  - Muscle disorder [Unknown]
  - Hypoaesthesia [Unknown]
  - Pain in extremity [Unknown]
  - Peripheral coldness [Unknown]
  - Mobility decreased [Unknown]
  - Dysstasia [Unknown]
  - Pruritus [Unknown]
  - Heart rate irregular [Unknown]
  - Hyperhidrosis [Unknown]
  - Oropharyngeal pain [Unknown]
  - Pain [Unknown]
  - Crying [Unknown]
  - Local swelling [Unknown]
  - Weight increased [Unknown]
  - Dyspnoea [Unknown]
  - Muscle spasms [Unknown]
  - Muscle twitching [Unknown]
  - Asthenia [Unknown]
  - Vision blurred [Unknown]
  - Constipation [Unknown]
  - Dizziness [Unknown]
  - Dry mouth [Unknown]
  - Fatigue [Unknown]
  - Tremor [Unknown]
  - Dyskinesia [Unknown]
